FAERS Safety Report 16198570 (Version 2)
Quarter: 2019Q2

REPORT INFORMATION
  Report Type: Spontaneous
  Country: FR (occurrence: FR)
  Receive Date: 20190415
  Receipt Date: 20190617
  Transmission Date: 20190711
  Serious: Yes (Hospitalization, Other)
  Sender: FDA-Public Use
  Company Number: FR-MYLANLABS-2019M1034625

PATIENT
  Age: 83 Year
  Sex: Female

DRUGS (4)
  1. ATENOLOL. [Suspect]
     Active Substance: ATENOLOL
     Indication: TACHYCARDIA
     Dosage: UNK
  2. NOLVADEX                           /00388701/ [Interacting]
     Active Substance: TAMOXIFEN CITRATE
     Dosage: 40 MILLIGRAM, QD
     Route: 048
  3. CORDARONE [Interacting]
     Active Substance: AMIODARONE HYDROCHLORIDE
     Indication: TACHYCARDIA
     Dosage: UNK
     Route: 042
     Dates: start: 201810
  4. NOLVADEX                           /00388701/ [Interacting]
     Active Substance: TAMOXIFEN CITRATE
     Indication: METASTASES TO PERITONEUM
     Dosage: 80 MILLIGRAM, QD
     Route: 048
     Dates: start: 20181004

REACTIONS (10)
  - Starvation [Not Recovered/Not Resolved]
  - Protein albumin ratio decreased [Not Recovered/Not Resolved]
  - Drug interaction [Recovered/Resolved]
  - Tumour marker increased [Not Recovered/Not Resolved]
  - Product use in unapproved indication [Unknown]
  - Off label use [Unknown]
  - Pyloric stenosis [Unknown]
  - Drug ineffective [Recovered/Resolved]
  - General physical health deterioration [Unknown]
  - Lung disorder [Recovered/Resolved]

NARRATIVE: CASE EVENT DATE: 201807
